FAERS Safety Report 7359500-7 (Version None)
Quarter: 2011Q1

REPORT INFORMATION
  Report Type: 
  Country: None (occurrence: None)
  Receive Date: 20110317
  Receipt Date: 20100105
  Transmission Date: 20110831
  Serious: No
  Sender: FDA-Public Use
  Company Number: US-PFIZER INC-2010002400

PATIENT
  Sex: Female
  Weight: 48.5 kg

DRUGS (1)
  1. AMLODIPINE BESYLATE [Suspect]
     Indication: HYPERTENSION
     Dosage: 5 MG, 1X/DAY
     Route: 048
     Dates: start: 20091215, end: 20091201

REACTIONS (3)
  - MALAISE [None]
  - DRY MOUTH [None]
  - FEELING ABNORMAL [None]
